FAERS Safety Report 20916575 (Version 1)
Quarter: 2022Q2

REPORT INFORMATION
  Report Type: Spontaneous
  Country: US (occurrence: US)
  Receive Date: 20220605
  Receipt Date: 20220605
  Transmission Date: 20220721
  Serious: No
  Sender: FDA-Public Use
  Company Number: US-drreddys-SPO/USA/22/0150330

PATIENT
  Age: 15 Year
  Sex: Female

DRUGS (2)
  1. ZENATANE [Suspect]
     Active Substance: ISOTRETINOIN
     Indication: Product used for unknown indication
     Dosage: RMA ISSUE DATE: 12 JANUARY 2022 07:07:21 PM, 15 FEBRUARY 2022 04:00:34 PM, 15 MARCH 2022 07:27:46 PM
  2. ZENATANE [Suspect]
     Active Substance: ISOTRETINOIN
     Dosage: RMA ISSUE DATE: 12 JANUARY 2022 07:07:21 PM, 15 FEBRUARY 2022 04:00:34 PM, 15 MARCH 2022 07:27:46 PM

REACTIONS (1)
  - Abdominal discomfort [Unknown]
